FAERS Safety Report 21082214 (Version 1)
Quarter: 2022Q3

REPORT INFORMATION
  Report Type: Spontaneous
  Country: DE (occurrence: DE)
  Receive Date: 20220714
  Receipt Date: 20220714
  Transmission Date: 20221027
  Serious: Yes (Other)
  Sender: FDA-Public Use
  Company Number: None

PATIENT
  Age: 55 Year
  Sex: Female

DRUGS (4)
  1. BUPROPION [Suspect]
     Active Substance: BUPROPION
     Indication: Depression
     Dosage: 150MG, FREQUENCY TIME 1DAYS, DURATION 6DAYS
     Route: 065
     Dates: start: 20210527, end: 20210602
  2. RAMIPRIL [Concomitant]
     Active Substance: RAMIPRIL
     Indication: Product used for unknown indication
     Dosage: FOR YEARS UNTIL FURTHER NOTICE, 5MG, FREQUENCY TIME 1DAYS
  3. ATORVASTATIN [Concomitant]
     Active Substance: ATORVASTATIN
     Indication: Drug therapy
     Dosage: FOR YEARS UNTIL FURTHER NOTICE, 20MG, FREQUENCY TIME 1DAYS
  4. QUETIAPINE [Concomitant]
     Active Substance: QUETIAPINE
     Indication: Product used for unknown indication
     Dosage: FOR MONTHS UNTIL FURTHER NOTICE, 50MG, FREQUENCY TIME 1DAYS

REACTIONS (10)
  - Loss of personal independence in daily activities [Recovered/Resolved]
  - Thinking abnormal [Recovered/Resolved]
  - Dizziness [Recovered/Resolved]
  - Dizziness postural [Recovered/Resolved]
  - Vomiting [Recovered/Resolved]
  - Hyperacusis [Recovered/Resolved]
  - Tremor [Recovered/Resolved]
  - Fatigue [Recovered/Resolved]
  - Nausea [Recovered/Resolved]
  - Restlessness [Recovered/Resolved]

NARRATIVE: CASE EVENT DATE: 20210527
